FAERS Safety Report 17970986 (Version 1)
Quarter: 2020Q3

REPORT INFORMATION
  Report Type: Spontaneous
  Country: JP (occurrence: JP)
  Receive Date: 20200702
  Receipt Date: 20200702
  Transmission Date: 20201103
  Serious: Yes (Other)
  Sender: FDA-Public Use
  Company Number: JP-CELLTRION INC.-2020JP020559

PATIENT

DRUGS (2)
  1. 5?AMINOSALICYLIC ACID [Concomitant]
     Active Substance: MESALAMINE
     Dosage: ADMINISTERED UNTIL 27 WEEKS OF GESTATION
  2. INFLIXIMAB BS FOR I.V. INFUSION100 MG [NK] [Suspect]
     Active Substance: INFLIXIMAB
     Indication: CROHN^S DISEASE
     Dosage: ADMINISTERED UNTIL 27 WEEKS OF GESTATION
     Route: 065

REACTIONS (3)
  - Coagulation time prolonged [Unknown]
  - Maternal exposure during pregnancy [Unknown]
  - Premature delivery [Unknown]
